FAERS Safety Report 19093782 (Version 3)
Quarter: 2021Q2

REPORT INFORMATION
  Report Type: Other
  Country: US (occurrence: US)
  Receive Date: 20210405
  Receipt Date: 20210517
  Transmission Date: 20210717
  Serious: No
  Sender: FDA-Public Use
  Company Number: US-NEUROCRINE BIOSCIENCES INC.-2021NBI01182

PATIENT

DRUGS (1)
  1. INGREZZA [Suspect]
     Active Substance: VALBENAZINE
     Indication: TARDIVE DYSKINESIA
     Dosage: 40 MILLIGRAM, QD
     Route: 048
     Dates: start: 20181220

REACTIONS (4)
  - Endodontic procedure [Unknown]
  - Dental caries [Unknown]
  - Tremor [Unknown]
  - Dry mouth [Unknown]

NARRATIVE: CASE EVENT DATE: 2021
